FAERS Safety Report 6446351-0 (Version None)
Quarter: 2009Q4

REPORT INFORMATION
  Report Type: 
  Country: None (occurrence: None)
  Receive Date: 20091119
  Receipt Date: 20091105
  Transmission Date: 20100525
  Serious: Yes (Other)
  Sender: FDA-Public Use
  Company Number: US-RB-025226-09

PATIENT
  Age: 39 Year
  Sex: Male

DRUGS (3)
  1. MUCINEX [Suspect]
     Route: 048
  2. AUGMENTIN [Suspect]
  3. MICARDIS HCT [Concomitant]
     Indication: HYPERTENSION

REACTIONS (6)
  - DIZZINESS [None]
  - ERYTHEMA [None]
  - LOSS OF CONSCIOUSNESS [None]
  - MALAISE [None]
  - PRURITUS [None]
  - VOMITING [None]
